FAERS Safety Report 10168221 (Version 2)
Quarter: 2014Q2

REPORT INFORMATION
  Report Type: Spontaneous
  Country: GB (occurrence: GB)
  Receive Date: 20140512
  Receipt Date: 20140512
  Transmission Date: 20141212
  Serious: Yes (Other)
  Sender: FDA-Public Use
  Company Number: GB-009507513-1403GBR003083

PATIENT
  Sex: Female

DRUGS (1)
  1. ETONOGESTREL IMPLANT- UNKNOWN [Suspect]
     Dosage: UNK
     Route: 030
     Dates: start: 201101, end: 2014

REACTIONS (6)
  - Surgery [Recovered/Resolved with Sequelae]
  - Haemorrhage [Unknown]
  - Device deployment issue [Recovered/Resolved with Sequelae]
  - Medical device complication [Recovered/Resolved with Sequelae]
  - Incorrect drug administration duration [Unknown]
  - Incorrect route of drug administration [Unknown]
